FAERS Safety Report 11310592 (Version 1)
Quarter: 2015Q3

REPORT INFORMATION
  Report Type: Spontaneous
  Country: None (occurrence: US)
  Receive Date: 20150724
  Receipt Date: 20150724
  Transmission Date: 20151125
  Serious: No
  Sender: FDA-Public Use
  Company Number: US-GALENA BIOPHARMA-1040748

PATIENT
  Sex: Female

DRUGS (1)
  1. ABSTRAL [Suspect]
     Active Substance: FENTANYL CITRATE
     Indication: OFF LABEL USE
     Route: 060

REACTIONS (2)
  - Dry mouth [None]
  - Oral pain [None]
